FAERS Safety Report 4710034-5 (Version None)
Quarter: 2005Q3

REPORT INFORMATION
  Report Type: 
  Country: None (occurrence: None)
  Receive Date: 20050708
  Receipt Date: 20050125
  Transmission Date: 20060218
  Serious: Yes (Other)
  Sender: FDA-Public Use
  Company Number: PHEH2005US01287

PATIENT
  Age: 70 Year
  Sex: Male

DRUGS (5)
  1. ZOMETA [Suspect]
     Indication: PROSTATE CANCER
     Dosage: 4MG Q MONTH
     Route: 042
  2. FLOMAX [Concomitant]
  3. NEOSPORIN [Concomitant]
  4. LIPITOR [Concomitant]
  5. ASPIRIN [Concomitant]
     Dosage: 81 MG, UNK

REACTIONS (7)
  - APICAL GRANULOMA [None]
  - ASEPTIC NECROSIS BONE [None]
  - BONE DISORDER [None]
  - FACE AND MOUTH X-RAY ABNORMAL [None]
  - IMPAIRED HEALING [None]
  - ORAL SURGERY [None]
  - TOOTH EXTRACTION [None]
